FAERS Safety Report 6711988-8 (Version None)
Quarter: 2010Q2

REPORT INFORMATION
  Report Type: 
  Country: None (occurrence: None)
  Receive Date: 20100505
  Receipt Date: 20100503
  Transmission Date: 20101027
  Serious: Yes (Hospitalization)
  Sender: FDA-Public Use
  Company Number: TR-ROXANE LABORATORIES, INC.-2010-RO-00509RO

PATIENT
  Age: 48 Year
  Sex: Female

DRUGS (2)
  1. CITALOPRAM HYDROBROMIDE [Suspect]
     Indication: DEPRESSION
     Dosage: 20 MG
  2. ZOLMITRIPTAN [Suspect]
     Indication: MIGRAINE
     Dosage: 5 MG

REACTIONS (2)
  - ACUTE MYOCARDIAL INFARCTION [None]
  - PRINZMETAL ANGINA [None]
